FAERS Safety Report 9665051 (Version 1)
Quarter: 2013Q4

REPORT INFORMATION
  Report Type: Spontaneous
  Country: HR (occurrence: HR)
  Receive Date: 20131101
  Receipt Date: 20131101
  Transmission Date: 20140711
  Serious: Yes (Other)
  Sender: FDA-Public Use
  Company Number: PHHY2013HR120355

PATIENT
  Age: 68 Year
  Sex: Male

DRUGS (4)
  1. SANVAL [Suspect]
     Indication: INITIAL INSOMNIA
     Dosage: 10 MG, QD
     Route: 048
     Dates: start: 20130408, end: 201304
  2. TRITACE [Concomitant]
     Dosage: 1.25 MG, QD
     Route: 048
  3. CARVETREND [Concomitant]
     Indication: CARDIAC FAILURE
     Dosage: 3.125 MG, BID
     Route: 048
  4. ALDACTONE [Concomitant]
     Indication: CARDIAC FAILURE
     Dosage: 50 MG, QD
     Route: 048

REACTIONS (6)
  - Disorientation [Recovered/Resolved]
  - Slow speech [Recovered/Resolved]
  - Fall [Recovered/Resolved]
  - Enuresis [Recovered/Resolved]
  - Restlessness [Recovered/Resolved]
  - Amnesia [Recovered/Resolved]
